FAERS Safety Report 18648479 (Version 1)
Quarter: 2020Q4

REPORT INFORMATION
  Report Type: Spontaneous
  Country: US (occurrence: US)
  Receive Date: 20201222
  Receipt Date: 20201222
  Transmission Date: 20210114
  Serious: Yes (Hospitalization)
  Sender: FDA-Public Use
  Company Number: None

PATIENT
  Age: 86 Year
  Sex: Male

DRUGS (11)
  1. PREDNISONE. [Concomitant]
     Active Substance: PREDNISONE
  2. SYMBICORT [Concomitant]
     Active Substance: BUDESONIDE\FORMOTEROL FUMARATE DIHYDRATE
  3. CASODEX [Concomitant]
     Active Substance: BICALUTAMIDE
  4. ZETIA [Concomitant]
     Active Substance: EZETIMIBE
  5. ISOSORBIDE. [Concomitant]
     Active Substance: ISOSORBIDE
  6. OMEPRAZOLE. [Concomitant]
     Active Substance: OMEPRAZOLE
  7. IPRATROPIUM [Concomitant]
     Active Substance: IPRATROPIUM
  8. FLU SHOT [Suspect]
     Active Substance: INFLUENZA VIRUS VACCINE
  9. ABIRATERONE ACETATE. [Suspect]
     Active Substance: ABIRATERONE ACETATE
     Indication: PROSTATE CANCER
     Route: 048
     Dates: start: 20190226
  10. METFORMIN [Concomitant]
     Active Substance: METFORMIN HYDROCHLORIDE
  11. LANTUS [Concomitant]
     Active Substance: INSULIN GLARGINE

REACTIONS (4)
  - Nausea [None]
  - Confusional state [None]
  - Vaccination complication [None]
  - Vomiting [None]

NARRATIVE: CASE EVENT DATE: 20201019
